FAERS Safety Report 19545757 (Version 1)
Quarter: 2021Q3

REPORT INFORMATION
  Report Type: Spontaneous
  Country: US (occurrence: US)
  Receive Date: 20210714
  Receipt Date: 20210714
  Transmission Date: 20211014
  Serious: No
  Sender: FDA-Public Use
  Company Number: US-AJANTA PHARMA USA INC.-2113807

PATIENT
  Age: 69 Year
  Sex: Female

DRUGS (1)
  1. CHOLESTYRAMINE (ANDA 211119) [Suspect]
     Active Substance: CHOLESTYRAMINE
     Indication: PRODUCT USED FOR UNKNOWN INDICATION

REACTIONS (4)
  - Product substitution issue [Unknown]
  - Therapeutic product effect incomplete [Unknown]
  - Product use complaint [Unknown]
  - Product physical consistency issue [Unknown]
